FAERS Safety Report 15755326 (Version 3)
Quarter: 2025Q3

REPORT INFORMATION
  Report Type: Spontaneous
  Country: EU (occurrence: EU)
  Receive Date: 20181224
  Receipt Date: 20250728
  Transmission Date: 20251021
  Serious: Yes (Other)
  Sender: AUROBINDO
  Company Number: EU-AUROBINDO-AUR-APL-2018-060943

PATIENT
  Age: 24 Year
  Sex: Male

DRUGS (6)
  1. VALPROIC ACID [Suspect]
     Active Substance: VALPROIC ACID
     Indication: Delusional disorder, persecutory type
     Route: 065
  2. VALPROIC ACID [Suspect]
     Active Substance: VALPROIC ACID
     Indication: Hallucination, auditory
  3. HALOPERIDOL [Concomitant]
     Active Substance: HALOPERIDOL
     Indication: Delusional disorder, persecutory type
     Route: 065
  4. HALOPERIDOL [Concomitant]
     Active Substance: HALOPERIDOL
     Indication: Hallucination, auditory
  5. OLANZAPINE [Concomitant]
     Active Substance: OLANZAPINE
     Indication: Hallucination, auditory
     Route: 065
  6. OLANZAPINE [Concomitant]
     Active Substance: OLANZAPINE
     Indication: Delusional disorder, persecutory type

REACTIONS (10)
  - Multiple injuries [Recovered/Resolved]
  - Oral mucosal erythema [Recovered/Resolved]
  - Mouth haemorrhage [Recovered/Resolved]
  - Myalgia [Recovered/Resolved]
  - Gingival ulceration [Recovered/Resolved]
  - Pain [Recovered/Resolved]
  - Haemorrhage [Recovered/Resolved]
  - Lip ulceration [Recovered/Resolved]
  - Necrosis [Recovered/Resolved]
  - Mouth ulceration [Unknown]
